FAERS Safety Report 5152162-9 (Version None)
Quarter: 2006Q4

REPORT INFORMATION
  Report Type: 
  Country: None (occurrence: None)
  Receive Date: 20061116
  Receipt Date: 20051102
  Transmission Date: 20070319
  Serious: Yes (Other)
  Sender: FDA-Public Use
  Company Number: JP-GLAXOSMITHKLINE-B0399480A

PATIENT
  Sex: Male

DRUGS (5)
  1. COMBIVIR [Suspect]
     Indication: HIV INFECTION
  2. ZIDOVUDINE [Suspect]
     Indication: ANTIVIRAL PROPHYLAXIS
  3. VIRACEPT [Suspect]
     Indication: HIV INFECTION
     Dates: start: 20020823
  4. STEROID [Suspect]
     Indication: PRENATAL CARE
  5. ZIDOVUDINE [Concomitant]
     Route: 048

REACTIONS (8)
  - ANAEMIA [None]
  - ANAEMIA NEONATAL [None]
  - CAESAREAN SECTION [None]
  - CHEST X-RAY ABNORMAL [None]
  - DRUG EXPOSURE DURING PREGNANCY [None]
  - PREMATURE LABOUR [None]
  - TACHYPNOEA [None]
  - THREATENED LABOUR [None]
